FAERS Safety Report 5317711-6 (Version None)
Quarter: 2007Q2

REPORT INFORMATION
  Report Type: 
  Country: None (occurrence: None)
  Receive Date: 20070507
  Receipt Date: 20070424
  Transmission Date: 20071010
  Serious: Yes (Death, Hospitalization)
  Sender: FDA-Public Use
  Company Number: NSADSS2002019013

PATIENT
  Age: 75 Year
  Sex: Female

DRUGS (11)
  1. REMICADE [Suspect]
     Route: 041
     Dates: start: 20010112
  2. REMICADE [Suspect]
     Indication: RHEUMATOID ARTHRITIS
     Route: 041
     Dates: start: 20010112
  3. PREDNISONE TAB [Concomitant]
     Indication: RHEUMATOID ARTHRITIS
     Dates: start: 19950101
  4. TREXAN [Concomitant]
     Indication: RHEUMATOID ARTHRITIS
     Dates: start: 19960101
  5. OXIKLORIN [Concomitant]
     Indication: RHEUMATOID ARTHRITIS
  6. SALAZOPYRIN EN [Concomitant]
     Indication: RHEUMATOID ARTHRITIS
     Dates: start: 19950101
  7. ISMOX [Concomitant]
     Indication: CORONARY ARTERY DISEASE
  8. NEURONTIN [Concomitant]
     Indication: PAIN
  9. VIOXX [Concomitant]
     Indication: PAIN
  10. FOSAMAX [Concomitant]
     Indication: OSTEOPOROSIS
  11. DESERONIL [Concomitant]
     Indication: DEPRESSION

REACTIONS (5)
  - ANOXIC ENCEPHALOPATHY [None]
  - CARDIAC ARREST [None]
  - PNEUMOCYSTIS JIROVECI INFECTION [None]
  - PNEUMONIA [None]
  - RESPIRATORY FAILURE [None]
